FAERS Safety Report 10187707 (Version 1)
Quarter: 2014Q2

REPORT INFORMATION
  Report Type: Spontaneous
  Country: US (occurrence: US)
  Receive Date: 20140522
  Receipt Date: 20140522
  Transmission Date: 20141212
  Serious: No
  Sender: FDA-Public Use
  Company Number: US-SANOFI-AVENTIS-2013SA078204

PATIENT
  Age: 68 Year
  Sex: Male
  Weight: 113 kg

DRUGS (5)
  1. LANTUS SOLOSTAR [Suspect]
     Indication: DIABETES MELLITUS
     Dosage: DOSE:70 UNIT(S)
     Route: 051
     Dates: start: 20100915
  2. LANTUS SOLOSTAR [Suspect]
     Indication: DIABETES MELLITUS
     Dosage: DOSE:70 UNIT(S)
     Route: 051
     Dates: start: 20100915
  3. SOLOSTAR [Concomitant]
     Indication: DIABETES MELLITUS
     Dates: start: 20100915
  4. SOLOSTAR [Concomitant]
     Indication: DIABETES MELLITUS
     Dates: start: 20100915
  5. NOVOLOG [Concomitant]

REACTIONS (1)
  - Obesity [Unknown]
